FAERS Safety Report 7818251-2 (Version None)
Quarter: 2011Q4

REPORT INFORMATION
  Report Type: 
  Country: None (occurrence: None)
  Receive Date: 20111017
  Receipt Date: 20111006
  Transmission Date: 20120403
  Serious: Yes (Death, Hospitalization)
  Sender: FDA-Public Use
  Company Number: JP-PERRIGO-11JP008565

PATIENT
  Age: 62 Year
  Sex: Female

DRUGS (4)
  1. PREDNISOLONE SODIUM PHOSPHATE [Suspect]
     Indication: GLOMERULONEPHRITIS
  2. GANCICLOVIR [Suspect]
     Indication: INFECTION
     Dosage: UNK UNK, QD
     Route: 065
  3. PREDNISOLONE SODIUM PHOSPHATE [Suspect]
     Indication: ARTHRALGIA
     Dosage: 40-20MG/DAY TAPER
     Route: 048
  4. PREDNISOLONE SODIUM PHOSPHATE [Suspect]
     Indication: PYREXIA
     Dosage: 30 MG, QD
     Route: 048

REACTIONS (4)
  - ASPERGILLOSIS [None]
  - SEPSIS [None]
  - GRANULOCYTOPENIA [None]
  - IMMUNOSUPPRESSION [None]
